FAERS Safety Report 19392961 (Version 3)
Quarter: 2022Q1

REPORT INFORMATION
  Report Type: Spontaneous
  Country: PL (occurrence: PL)
  Receive Date: 20210609
  Receipt Date: 20220105
  Transmission Date: 20220424
  Serious: Yes (Hospitalization, Other)
  Sender: FDA-Public Use
  Company Number: PL-002147023-NVSC2021PL105402

PATIENT
  Age: 79 Year
  Sex: Male
  Weight: 103.3 kg

DRUGS (16)
  1. ALLOPURINOL [Suspect]
     Active Substance: ALLOPURINOL
     Indication: Product used for unknown indication
     Dosage: 300 MILLIGRAM, ONCE A DAY
     Route: 065
  2. ATORVASTATIN [Suspect]
     Active Substance: ATORVASTATIN
     Indication: Product used for unknown indication
     Dosage: 20 MILLIGRAM, ONCE A DAY (IN THE EVENING)
     Route: 065
  3. BISOPROLOL [Suspect]
     Active Substance: BISOPROLOL
     Indication: Product used for unknown indication
     Dosage: 5 MILLIGRAM, ONCE A DAY
     Route: 065
  4. FINASTERIDE [Suspect]
     Active Substance: FINASTERIDE
     Indication: Product used for unknown indication
     Dosage: 5 MILLIGRAM, ONCE A DAY  (IN THE MORNING)
     Route: 065
  5. TAMSULOSIN [Suspect]
     Active Substance: TAMSULOSIN
     Indication: Product used for unknown indication
     Dosage: 0.4 MILLIGRAM, ONCE A DAY (IN THE MORNING)
     Route: 065
  6. PERINDOPRIL ARGININE [Suspect]
     Active Substance: PERINDOPRIL ARGININE
     Indication: Product used for unknown indication
     Dosage: 10 MILLIGRAM, ONCE A DAY (IN THE EVENING)
     Route: 065
  7. METFORMIN [Suspect]
     Active Substance: METFORMIN HYDROCHLORIDE
     Indication: Product used for unknown indication
     Dosage: 1500 MILLIGRAM, ONCE A DAY
     Route: 065
  8. LERCANIDIPINE [Suspect]
     Active Substance: LERCANIDIPINE
     Indication: Product used for unknown indication
     Dosage: 20 MILLIGRAM, DAILY
     Route: 065
  9. GLICLAZIDE [Suspect]
     Active Substance: GLICLAZIDE
     Indication: Product used for unknown indication
     Dosage: 60 MILLIGRAM, ONCE A DAY (IN THE MORNING)
     Route: 065
  10. TORSEMIDE [Suspect]
     Active Substance: TORSEMIDE
     Indication: Product used for unknown indication
     Dosage: 20 MILLIGRAM, ONCE A DAY ( (IN THE MORNING))
     Route: 065
  11. FORMOTEROL [Suspect]
     Active Substance: FORMOTEROL
     Indication: Product used for unknown indication
     Dosage: 12 UG, BID (1 INHALATION)
     Route: 055
  12. ALLOPURINOL [Suspect]
     Active Substance: ALLOPURINOL
     Indication: Product used for unknown indication
     Dosage: 300 MILLIGRAM, ONCE A DAY (IN THE MORNING)
     Route: 065
  13. TRIMETAZIDINE [Suspect]
     Active Substance: TRIMETAZIDINE
     Indication: Product used for unknown indication
     Dosage: 20 MG (IN THE MORNING AND EVENING)
     Route: 065
  14. TRIMETAZIDINE [Suspect]
     Active Substance: TRIMETAZIDINE
     Dosage: 40 MILLIGRAM, ONCE A DAY (20 MG, BID )
     Route: 065
  15. EPLERENONE [Suspect]
     Active Substance: EPLERENONE
     Indication: Product used for unknown indication
     Dosage: 25 MG (IN THE MORNING)
     Route: 065
  16. ACENOCOUMAROL [Suspect]
     Active Substance: ACENOCOUMAROL
     Indication: Product used for unknown indication
     Dosage: 3 MILLIGRAM, ONCE A DAY
     Route: 065

REACTIONS (20)
  - Cardiac failure chronic [Unknown]
  - Ejection fraction decreased [Unknown]
  - Dyspnoea at rest [Unknown]
  - Coronary artery stenosis [Unknown]
  - Cardiac murmur [Unknown]
  - Pleural effusion [Unknown]
  - Rales [Unknown]
  - Inferior vena cava dilatation [Unknown]
  - Splenomegaly [Unknown]
  - Ventricular enlargement [Unknown]
  - Renal cyst [Unknown]
  - Oedema peripheral [Unknown]
  - Liver palpable [Unknown]
  - Hepatic vein dilatation [Unknown]
  - Atrial enlargement [Unknown]
  - Heart rate irregular [Unknown]
  - Left ventricular enlargement [Unknown]
  - Left atrial enlargement [Unknown]
  - Breath sounds abnormal [Unknown]
  - Stenosis [Unknown]

NARRATIVE: CASE EVENT DATE: 20210101
